FAERS Safety Report 8271277-X (Version None)
Quarter: 2012Q2

REPORT INFORMATION
  Report Type: 
  Country: None (occurrence: None)
  Receive Date: 20120410
  Receipt Date: 20120330
  Transmission Date: 20120825
  Serious: Yes (Death, Hospitalization)
  Sender: FDA-Public Use
  Company Number: DE-SANOFI-AVENTIS-2012SA023087

PATIENT
  Age: 76 Year
  Sex: Male
  Weight: 72 kg

DRUGS (7)
  1. PLAVIX [Suspect]
     Route: 048
     Dates: start: 20111111
  2. ETANERCEPT [Suspect]
     Route: 065
     Dates: start: 20090817, end: 20110919
  3. PLAVIX [Suspect]
     Indication: MICROANGIOPATHY
     Route: 048
     Dates: start: 20071201, end: 20111001
  4. PLAVIX [Suspect]
     Indication: VASCULAR OCCLUSION
     Route: 048
     Dates: start: 20071201, end: 20111001
  5. ETANERCEPT [Suspect]
     Indication: RHEUMATOID ARTHRITIS
     Route: 065
     Dates: start: 20030320, end: 20090111
  6. PLAVIX [Suspect]
     Route: 048
     Dates: start: 20111111
  7. PREDNISOLONE [Suspect]
     Indication: RHEUMATOID ARTHRITIS
     Dosage: 5-10 MG
     Route: 048
     Dates: start: 19931201

REACTIONS (2)
  - PULMONARY HAEMORRHAGE [None]
  - BRONCHIAL CARCINOMA [None]
